FAERS Safety Report 4543259-2 (Version None)
Quarter: 2004Q4

REPORT INFORMATION
  Report Type: 
  Country: None (occurrence: None)
  Receive Date: 20041229
  Receipt Date: 20041222
  Transmission Date: 20050328
  Serious: Yes (Hospitalization)
  Sender: FDA-Public Use
  Company Number: K200301325

PATIENT
  Age: 69 Year
  Sex: Female

DRUGS (12)
  1. ALTACE [Suspect]
     Dosage: 25 MG, BID, ORAL
     Route: 048
     Dates: end: 20030701
  2. NICORANDIL (NICORANDIL) 40MG [Suspect]
     Dosage: 20 MG, BID, ORAL
     Route: 048
     Dates: end: 20030701
  3. SIMVASTATIN [Suspect]
     Dosage: 40 MG, QD, ORAL
     Route: 048
  4. MEBEVERINE (MEBEVERINE) [Concomitant]
  5. CLOPIDOGREL (CLOPIDOGREL) [Concomitant]
  6. DILTIAZEM [Concomitant]
  7. BECLOMEETHASONE DIPROPIONATE (BECLOMETASONE DIPROPIONATE) [Concomitant]
  8. LATANOPROST [Concomitant]
  9. IRBESARTAN [Concomitant]
  10. SALBUTAMOL (SALBUTAMOL) [Concomitant]
  11. GTN (GLYCERYL TRINITRATE) [Concomitant]
  12. ACETAMINOPHEN [Concomitant]

REACTIONS (7)
  - C-REACTIVE PROTEIN INCREASED [None]
  - DIZZINESS [None]
  - FEELING HOT [None]
  - OEDEMA PERIPHERAL [None]
  - PYREXIA [None]
  - RASH PRURITIC [None]
  - URTICARIA [None]
